FAERS Safety Report 6337106-6 (Version None)
Quarter: 2009Q3

REPORT INFORMATION
  Report Type: 
  Country: None (occurrence: None)
  Receive Date: 20090831
  Receipt Date: 20090818
  Transmission Date: 20100115
  Serious: Yes (Hospitalization)
  Sender: FDA-Public Use
  Company Number: 8044283

PATIENT
  Age: 59 Year
  Sex: Female
  Weight: 98 kg

DRUGS (16)
  1. CIMZIA [Suspect]
     Indication: CROHN'S DISEASE
     Dosage: 400 MG 1/2W SC
     Route: 058
     Dates: start: 20090222, end: 20090222
  2. AZATHIOPRINE [Concomitant]
  3. PREDNISONE TAB [Concomitant]
  4. ACIPHEX [Concomitant]
  5. PRAVACHOL [Concomitant]
  6. ALTACE [Concomitant]
  7. GLUCOSE [Concomitant]
  8. GLUCOPHAGE [Concomitant]
  9. DILTIAZEM CD [Concomitant]
  10. CALCIUM CITRATE [Concomitant]
  11. LASIX [Concomitant]
  12. LEVSIN [Concomitant]
  13. DARVOCET-N 100 [Concomitant]
  14. FOSAMAX [Concomitant]
  15. PREMARIN [Concomitant]
  16. ADVAIR HFA [Concomitant]

REACTIONS (5)
  - CERVICAL MYELOPATHY [None]
  - DEMYELINATION [None]
  - DIPLOPIA [None]
  - NEUROENDOCRINE CARCINOMA OF THE SKIN [None]
  - QUADRIPARESIS [None]
